FAERS Safety Report 5104198-1 (Version None)
Quarter: 2006Q3

REPORT INFORMATION
  Report Type: 
  Country: None (occurrence: None)
  Receive Date: 20060911
  Receipt Date: 20060822
  Transmission Date: 20061208
  Serious: Yes (Other)
  Sender: FDA-Public Use
  Company Number: CA200608005894

PATIENT
  Age: 61 Year
  Sex: Female

DRUGS (11)
  1. FORTEO [Suspect]
     Indication: OSTEOPOROSIS
     Dosage: 20 UG, DAILY (1/D)
     Dates: start: 20060719
  2. FORTEO PEN (FORTEO PEN) PEN, DISPOSABLE [Concomitant]
  3. DILANTIN [Concomitant]
  4. FRISIUM (CLOBAZAM) [Concomitant]
  5. TOPAMAX [Concomitant]
  6. LIPITOR [Concomitant]
  7. LEVOTHYROXINE SODIUM [Concomitant]
  8. ASPIRIN [Concomitant]
  9. TUMS (CALCIUM CARBONATE) [Concomitant]
  10. VITAMIN D [Concomitant]
  11. ACETAMINOPHEN [Concomitant]

REACTIONS (3)
  - ARTHRALGIA [None]
  - CONVULSION [None]
  - MOBILITY DECREASED [None]
